FAERS Safety Report 5198482-3 (Version None)
Quarter: 2007Q1

REPORT INFORMATION
  Report Type: 
  Country: None (occurrence: None)
  Receive Date: 20070104
  Receipt Date: 20061229
  Transmission Date: 20070707
  Serious: Yes (Life-Threatening)
  Sender: FDA-Public Use
  Company Number: FR-ABBOTT-06P-056-0353543-00

PATIENT
  Age: 47 Year
  Sex: Female

DRUGS (4)
  1. AKINETON [Suspect]
     Indication: DRUG USE FOR UNKNOWN INDICATION
     Route: 048
     Dates: start: 19920615
  2. LEVOMEPROMAZINE [Suspect]
     Indication: DRUG USE FOR UNKNOWN INDICATION
     Route: 048
     Dates: start: 19910615
  3. CLOMIPRAMINE HCL [Suspect]
     Indication: DRUG USE FOR UNKNOWN INDICATION
     Route: 048
     Dates: start: 19920615
  4. TROPATEPINE [Suspect]
     Indication: DRUG USE FOR UNKNOWN INDICATION
     Route: 048
     Dates: start: 19950101

REACTIONS (6)
  - COLITIS ISCHAEMIC [None]
  - COLITIS ULCERATIVE [None]
  - INTESTINAL GANGRENE [None]
  - INTESTINAL PERFORATION [None]
  - PYREXIA [None]
  - VOMITING [None]
